FAERS Safety Report 25362432 (Version 1)
Quarter: 2025Q2

REPORT INFORMATION
  Report Type: Report from Study
  Country: IT (occurrence: IT)
  Receive Date: 20250527
  Receipt Date: 20250527
  Transmission Date: 20250716
  Serious: Yes (Hospitalization)
  Sender: AUROBINDO
  Company Number: IT-AUROBINDO-AUR-APL-2022-010635

PATIENT
  Age: 57 Year
  Sex: Male

DRUGS (3)
  1. LINEZOLID [Suspect]
     Active Substance: LINEZOLID
     Indication: Osteomyelitis
     Route: 065
  2. LINEZOLID [Suspect]
     Active Substance: LINEZOLID
     Indication: Enterococcal infection
  3. DAPTOMYCIN [Concomitant]
     Active Substance: DAPTOMYCIN
     Indication: Osteomyelitis
     Route: 065

REACTIONS (1)
  - Treatment failure [Unknown]
